FAERS Safety Report 23359586 (Version 1)
Quarter: 2024Q1

REPORT INFORMATION
  Report Type: Spontaneous
  Country: FR (occurrence: None)
  Receive Date: 20240103
  Receipt Date: 20240103
  Transmission Date: 20240410
  Serious: Yes (Hospitalization)
  Sender: FDA-Public Use
  Company Number: 2023A295902

PATIENT
  Age: 78 Year
  Sex: Male
  Weight: 60 kg

DRUGS (1)
  1. DAPAGLIFLOZIN [Suspect]
     Active Substance: DAPAGLIFLOZIN
     Indication: Diabetes mellitus
     Route: 048
     Dates: start: 20231102

REACTIONS (2)
  - Septic shock [Not Recovered/Not Resolved]
  - Pyelonephritis [Not Recovered/Not Resolved]

NARRATIVE: CASE EVENT DATE: 20231117
